FAERS Safety Report 14840490 (Version 1)
Quarter: 2018Q2

REPORT INFORMATION
  Report Type: Spontaneous
  Country: FR (occurrence: FR)
  Receive Date: 20180503
  Receipt Date: 20180503
  Transmission Date: 20180711
  Serious: Yes (Hospitalization)
  Sender: FDA-Public Use
  Company Number: FR-TEVA-2018-FR-889429

PATIENT
  Age: 70 Year
  Sex: Female
  Weight: 85 kg

DRUGS (22)
  1. FUROSEMIDE. [Suspect]
     Active Substance: FUROSEMIDE
     Indication: OEDEMA PERIPHERAL
     Dosage: 60 MILLIGRAM DAILY;
  2. DIFFU K [Suspect]
     Active Substance: POTASSIUM CHLORIDE
     Indication: HYPOKALAEMIA
     Dosage: 3600 MILLIGRAM DAILY;
     Route: 048
  3. ZOPICLONE [Concomitant]
     Active Substance: ZOPICLONE
     Indication: PRODUCT USED FOR UNKNOWN INDICATION
     Dosage: 3.75 MILLIGRAM DAILY; 7,5 MG
     Route: 048
  4. PREGABALIN. [Concomitant]
     Active Substance: PREGABALIN
     Indication: NEURALGIA
     Dosage: 200 MILLIGRAM DAILY; 1-0-1 PUIS 225 MG ? PARTIR DU 20/12/2017
     Route: 048
  5. FUROSEMIDE. [Suspect]
     Active Substance: FUROSEMIDE
     Route: 048
  6. ATENOLOL. [Suspect]
     Active Substance: ATENOLOL
     Indication: TACHYCARDIA
     Dosage: 50 MILLIGRAM DAILY; 1-0-0
     Route: 048
  7. TOPALGIC (TRAMADOL HYDROCHLORIDE) [Suspect]
     Active Substance: TRAMADOL HYDROCHLORIDE
     Indication: PAIN
     Dosage: 50 MILLIGRAM DAILY;
     Route: 048
  8. LANSOPRAZOLE. [Concomitant]
     Active Substance: LANSOPRAZOLE
     Indication: PEPTIC ULCER
     Dosage: 15 MILLIGRAM DAILY;
     Route: 065
  9. VALSARTAN. [Concomitant]
     Active Substance: VALSARTAN
     Indication: PRODUCT USED FOR UNKNOWN INDICATION
     Dosage: 80 MILLIGRAM DAILY; 1-0-0
     Route: 048
  10. MOVICOL [Concomitant]
     Active Substance: POLYETHYLENE GLYCOL 3350\POTASSIUM CHLORIDE\SODIUM BICARBONATE\SODIUM CHLORIDE
     Indication: PRODUCT USED FOR UNKNOWN INDICATION
     Dosage: 2 DOSAGE FORMS DAILY; 2-0-0 (SACHET)
     Route: 048
  11. GLUCOPHAGE 850 MG, COMPRIM? PELLICUL? [Concomitant]
     Indication: TYPE 2 DIABETES MELLITUS
     Dosage: 2550 MILLIGRAM DAILY;
     Route: 048
  12. NOVORAPID [Suspect]
     Active Substance: INSULIN ASPART
     Indication: TYPE 2 DIABETES MELLITUS
     Dosage: IF NECESSARY
     Route: 058
  13. CEFTAZIDIME. [Suspect]
     Active Substance: CEFTAZIDIME
     Indication: PSEUDOMONAS INFECTION
     Dosage: 3 GRAM DAILY;
     Route: 042
  14. PIPERACILLIN AND TAZOBACTAM [Suspect]
     Active Substance: PIPERACILLIN SODIUM\TAZOBACTAM SODIUM
     Indication: INFECTION
     Dosage: 1 DOSAGE FORMS DAILY; 3 DOSAGE FORM DAILY
     Route: 042
  15. ATROVENT [Suspect]
     Active Substance: IPRATROPIUM BROMIDE
     Indication: WHEEZING
     Dosage: UNSPECIFIED
     Route: 055
  16. BRICANYL [Suspect]
     Active Substance: TERBUTALINE SULFATE
     Indication: WHEEZING
     Route: 055
  17. DOLIPRANE [Concomitant]
     Active Substance: ACETAMINOPHEN
     Indication: PAIN
     Dosage: IF NECESSARY
     Route: 048
  18. METFORMIN HYDROCHLORIDE. [Concomitant]
     Active Substance: METFORMIN HYDROCHLORIDE
     Indication: PRODUCT USED FOR UNKNOWN INDICATION
     Route: 065
  19. INNOHEP [Suspect]
     Active Substance: TINZAPARIN SODIUM
     Indication: PRODUCT USED FOR UNKNOWN INDICATION
     Dosage: 1500 IU (INTERNATIONAL UNIT) DAILY;
     Route: 058
  20. KAYEXALATE [Suspect]
     Active Substance: SODIUM POLYSTYRENE SULFONATE
     Indication: HYPERKALAEMIA
     Dosage: ADAPTED ACCORDING TO NEED (INTERMITTENTLY)
     Route: 048
  21. OXYNORMORO [Concomitant]
     Active Substance: OXYCODONE HYDROCHLORIDE
     Indication: PAIN
     Route: 048
  22. LAROXYL [Concomitant]
     Active Substance: AMITRIPTYLINE HYDROCHLORIDE
     Indication: PRODUCT USED FOR UNKNOWN INDICATION
     Dosage: 50 MILLIGRAM DAILY;
     Route: 048

REACTIONS (1)
  - Toxic epidermal necrolysis [Not Recovered/Not Resolved]
